FAERS Safety Report 26116296 (Version 1)
Quarter: 2025Q4

REPORT INFORMATION
  Report Type: Spontaneous
  Country: US (occurrence: US)
  Receive Date: 20251203
  Receipt Date: 20251203
  Transmission Date: 20260117
  Serious: Yes (Life-Threatening, Hospitalization)
  Sender: JUBILANT
  Company Number: None

PATIENT

DRUGS (4)
  1. RISPERIDONE [Suspect]
     Active Substance: RISPERIDONE
     Indication: Product used for unknown indication
     Dosage: 1 MG, 2 TIMES PER DAY
  2. CLONIDINE [Suspect]
     Active Substance: CLONIDINE
     Indication: Product used for unknown indication
     Dosage: 0.1 MG, 2 TIMES PER DAY
  3. ALBUTEROL [Suspect]
     Active Substance: ALBUTEROL
     Indication: Dyspnoea
     Dosage: 13.5 MG, 147 PUFFS, SELF-ADMINISTERED DOSE WAS 13.5 (0.19MG/KG), SIMILAR TO CONTINUOUS NEBULIZER THE
  4. DEXMETHYLPHENIDATE [Suspect]
     Active Substance: DEXMETHYLPHENIDATE
     Indication: Product used for unknown indication
     Dosage: 30 MG, ONCE PER DAY

REACTIONS (2)
  - Supraventricular tachycardia [Recovered/Resolved]
  - Overdose [Unknown]
